FAERS Safety Report 6242443-X (Version None)
Quarter: 2009Q2

REPORT INFORMATION
  Report Type: 
  Country: None (occurrence: None)
  Receive Date: 20090624
  Receipt Date: 20090616
  Transmission Date: 20091009
  Serious: Yes (Hospitalization)
  Sender: FDA-Public Use
  Company Number: JP-ASTRAZENECA-2009AP03281

PATIENT
  Age: 28250 Day
  Sex: Female
  Weight: 44 kg

DRUGS (5)
  1. IRESSA [Suspect]
     Indication: LUNG ADENOCARCINOMA
     Route: 048
     Dates: start: 20090410, end: 20090507
  2. OXYCONTIN [Concomitant]
     Indication: CANCER PAIN
     Route: 048
     Dates: start: 20090407, end: 20090421
  3. NOVAMIN [Concomitant]
     Indication: ADVERSE DRUG REACTION
     Route: 048
     Dates: start: 20090408, end: 20090420
  4. MAGMITT [Concomitant]
     Indication: ADVERSE DRUG REACTION
     Route: 048
     Dates: start: 20090408, end: 20090427
  5. GRAMALIL [Concomitant]
     Indication: DELIRIUM
     Route: 048
     Dates: start: 20090327

REACTIONS (1)
  - HEPATIC FUNCTION ABNORMAL [None]
